FAERS Safety Report 6969197-3 (Version None)
Quarter: 2010Q3

REPORT INFORMATION
  Report Type: 
  Country: None (occurrence: None)
  Receive Date: 20100907
  Receipt Date: 20100826
  Transmission Date: 20110219
  Serious: Yes (Other)
  Sender: FDA-Public Use
  Company Number: PHHY2010US56838

PATIENT
  Sex: Female

DRUGS (1)
  1. RECLAST [Suspect]
     Dosage: UNK
     Dates: start: 20100812

REACTIONS (4)
  - FEELING ABNORMAL [None]
  - HYPERTENSION [None]
  - PAIN IN JAW [None]
  - PARAESTHESIA ORAL [None]
